FAERS Safety Report 24544699 (Version 3)
Quarter: 2025Q1

REPORT INFORMATION
  Report Type: Spontaneous
  Country: US (occurrence: US)
  Receive Date: 20241024
  Receipt Date: 20250317
  Transmission Date: 20250408
  Serious: No
  Sender: JOHNSON AND JOHNSON
  Company Number: US-JNJFOC-20241041680

PATIENT
  Sex: Male

DRUGS (7)
  1. RISPERDAL [Suspect]
     Active Substance: RISPERIDONE
     Indication: Defiant behaviour
     Route: 065
  2. RISPERDAL [Suspect]
     Active Substance: RISPERIDONE
     Indication: Mood swings
  3. RISPERDAL [Suspect]
     Active Substance: RISPERIDONE
     Indication: Aggression
  4. RISPERDAL [Suspect]
     Active Substance: RISPERIDONE
  5. RISPERDAL [Suspect]
     Active Substance: RISPERIDONE
  6. RISPERDAL [Suspect]
     Active Substance: RISPERIDONE
  7. CONCERTA [Suspect]
     Active Substance: METHYLPHENIDATE HYDROCHLORIDE
     Indication: Attention deficit hyperactivity disorder
     Route: 048

REACTIONS (1)
  - Drug ineffective [Unknown]
